FAERS Safety Report 5098640-2 (Version None)
Quarter: 2006Q3

REPORT INFORMATION
  Report Type: 
  Country: None (occurrence: None)
  Receive Date: 20060907
  Receipt Date: 20060824
  Transmission Date: 20061208
  Serious: Yes (Death)
  Sender: FDA-Public Use
  Company Number: US-BAYER-200615264BWH

PATIENT
  Age: 74 Year
  Sex: Male

DRUGS (8)
  1. NEXAVAR [Suspect]
     Indication: PROSTATE CANCER METASTATIC
     Dates: start: 20060701
  2. VICODIN [Concomitant]
  3. LOPID [Concomitant]
  4. ALLOPURINOL [Concomitant]
  5. CELEXA [Concomitant]
  6. ARICEPT [Concomitant]
  7. SEROQUEL [Concomitant]
  8. DURAGESIC-100 [Concomitant]

REACTIONS (2)
  - DEATH [None]
  - PROSTATE CANCER METASTATIC [None]
